FAERS Safety Report 5432026-3 (Version None)
Quarter: 2007Q3

REPORT INFORMATION
  Report Type: 
  Country: None (occurrence: None)
  Receive Date: 20070830
  Receipt Date: 20070829
  Transmission Date: 20080115
  Serious: No
  Sender: FDA-Public Use
  Company Number: US-BOEHRINGER INGELHEIM PHARMACEUTICALS, INC.-2007-BP-16964BP

PATIENT
  Sex: Female

DRUGS (1)
  1. MICARDIS [Suspect]
     Indication: HYPERTENSION
     Route: 048
     Dates: start: 20070101

REACTIONS (8)
  - ASTHENIA [None]
  - BLOOD PRESSURE INADEQUATELY CONTROLLED [None]
  - BLOOD PRESSURE INCREASED [None]
  - EMOTIONAL DISTRESS [None]
  - HYPERHIDROSIS [None]
  - IMPAIRED DRIVING ABILITY [None]
  - MALAISE [None]
  - MUSCULAR WEAKNESS [None]
